FAERS Safety Report 6881416-0 (Version None)
Quarter: 2010Q3

REPORT INFORMATION
  Report Type: 
  Country: None (occurrence: None)
  Receive Date: 20100728
  Receipt Date: 20100728
  Transmission Date: 20110219
  Serious: Yes (Other)
  Sender: FDA-Public Use
  Company Number: None

PATIENT
  Age: 41 Year
  Sex: Male
  Weight: 83.6 kg

DRUGS (15)
  1. TEMODAR 100MG, 20MG, 5MG SCHERING-PLOUGH [Suspect]
     Indication: GLIOBLASTOMA MULTIFORME
     Dosage: 200MG DAILY ORAL
     Route: 048
     Dates: start: 20090511, end: 20090531
  2. TEMODAR [Suspect]
     Dosage: 205MG DAILY ORAL
     Route: 048
     Dates: start: 20090608, end: 20090628
  3. TEMODAR [Suspect]
     Dosage: 5MG DAILY ORAL
     Route: 048
     Dates: start: 20090709, end: 20090729
  4. TEMODAR [Suspect]
     Dates: start: 20090806, end: 20090826
  5. TEMODAR [Suspect]
     Dates: start: 20090806, end: 20090826
  6. TEMODAR [Suspect]
     Dates: start: 20091001, end: 20091021
  7. DEXAMETHASONE [Concomitant]
  8. SIMVASTIN [Concomitant]
  9. NIACIN [Concomitant]
  10. ASPIRIN [Concomitant]
  11. M.V.I. [Concomitant]
  12. BACTRIM DS [Concomitant]
  13. ACYCLOVIR [Concomitant]
  14. GLUCOTROL XL [Suspect]
  15. DIFLUCAN [Concomitant]

REACTIONS (7)
  - AGGRESSION [None]
  - BLOOD ALBUMIN INCREASED [None]
  - BLOOD GLUCOSE INCREASED [None]
  - DYSARTHRIA [None]
  - ELECTROCARDIOGRAM T WAVE ABNORMAL [None]
  - LOSS OF CONSCIOUSNESS [None]
  - LYMPHOCYTE MORPHOLOGY ABNORMAL [None]
